FAERS Safety Report 7458795-9 (Version None)
Quarter: 2011Q2

REPORT INFORMATION
  Report Type: 
  Country: None (occurrence: None)
  Receive Date: 20110504
  Receipt Date: 20110421
  Transmission Date: 20111010
  Serious: Yes (Other)
  Sender: FDA-Public Use
  Company Number: CA-JNJFOC-20110401464

PATIENT
  Sex: Female

DRUGS (2)
  1. REMICADE [Suspect]
     Indication: HIDRADENITIS
     Dosage: PATIENT LAST DOSE WAS IN FEB-2011 AND SHE IS DUE FOR HER NEXT DOSE 30-MAY-2011 AFTER HER SURGERY
     Route: 042
  2. REMICADE [Suspect]
     Dosage: PATIENT LAST DOSE WAS IN FEB-2011 AND SHE IS DUE FOR HER NEXT DOSE 30-MAY-2011 AFTER HER SURGERY
     Route: 042

REACTIONS (1)
  - KELOID SCAR [None]
